FAERS Safety Report 5768119-0 (Version None)
Quarter: 2008Q2

REPORT INFORMATION
  Report Type: 
  Country: None (occurrence: None)
  Receive Date: 20080612
  Receipt Date: 20080602
  Transmission Date: 20081010
  Serious: Yes (Other)
  Sender: FDA-Public Use
  Company Number: US-ELI_LILLY_AND_COMPANY-US200802006213

PATIENT
  Age: 41 Year
  Sex: Male

DRUGS (4)
  1. CYMBALTA [Suspect]
     Indication: DEPRESSION
     Dosage: 60 MG, UNK
  2. CYMBALTA [Suspect]
     Dosage: 30 MG, UNK
  3. CYMBALTA [Suspect]
     Dosage: 1 D/F, UNK
     Dates: end: 20080101
  4. PREVACID [Concomitant]

REACTIONS (8)
  - CONTUSION [None]
  - CONVULSION [None]
  - DRUG WITHDRAWAL SYNDROME [None]
  - ELEVATED MOOD [None]
  - JUDGEMENT IMPAIRED [None]
  - PARAESTHESIA [None]
  - ROAD TRAFFIC ACCIDENT [None]
  - VERTIGO [None]
